FAERS Safety Report 9011801 (Version 1)
Quarter: 2013Q1

REPORT INFORMATION
  Report Type: Spontaneous
  Country: US (occurrence: US)
  Receive Date: 20130113
  Receipt Date: 20130113
  Transmission Date: 20140127
  Serious: No
  Sender: FDA-Public Use
  Company Number: PHEH2012US025733

PATIENT
  Age: 62 Year
  Sex: Male

DRUGS (12)
  1. TASIGNA [Suspect]
     Dosage: 150 MG, UNK
  2. MICARDIS [Concomitant]
     Dosage: 20 MG, UNK
  3. GABAPENTIN [Concomitant]
     Dosage: 100 MG, UNK
  4. PANTOPRAZOLE [Concomitant]
     Dosage: 20 MG, UNK
  5. DIGOXIN [Concomitant]
     Dosage: 0.25 MG, UNK
  6. ALLOPURINOL [Concomitant]
     Dosage: 100 MG, UNK
  7. FERROUS SULPHATE [Concomitant]
     Dosage: 325 MG, UNK
  8. ADREVIL [Concomitant]
  9. ASPIRIN COMPOUND [Concomitant]
  10. TIMOLOL [Concomitant]
  11. OXYCODONE [Concomitant]
  12. BOOST [Concomitant]

REACTIONS (2)
  - Arthralgia [Unknown]
  - Weight increased [Unknown]
